FAERS Safety Report 5198170-3 (Version None)
Quarter: 2007Q1

REPORT INFORMATION
  Report Type: 
  Country: None (occurrence: None)
  Receive Date: 20070104
  Receipt Date: 20061229
  Transmission Date: 20070707
  Serious: Yes (Death)
  Sender: FDA-Public Use
  Company Number: GB-ROCHE-476689

PATIENT
  Age: 75 Year
  Sex: Male
  Weight: 70.4 kg

DRUGS (10)
  1. CAPECITABINE [Suspect]
     Indication: COLORECTAL CANCER
     Dosage: FOR 14 DAYS EVERY THREE WEEK CYCLE.
     Route: 048
     Dates: start: 20061212, end: 20061220
  2. FOLIC ACID [Suspect]
     Route: 048
  3. LOPERAMIDE HCL [Suspect]
     Indication: DIARRHOEA
     Dosage: PRN
     Route: 048
     Dates: start: 20061219
  4. CODEINE PHOSPHATE [Suspect]
     Indication: DIARRHOEA
     Dosage: PRN.
     Route: 048
     Dates: start: 20061223
  5. FERROUS SULFATE TAB [Concomitant]
     Route: 048
     Dates: start: 20020615
  6. DOMPERIDONE [Concomitant]
     Route: 048
     Dates: start: 20061212
  7. CALCICHEW D3 FORTE [Concomitant]
     Route: 048
  8. LANSOPRAZOLE [Concomitant]
     Route: 048
     Dates: start: 20040615
  9. VENTOLIN [Concomitant]
     Indication: ASTHMA
  10. SERETIDE [Concomitant]

REACTIONS (9)
  - ASTHENIA [None]
  - CONSTIPATION [None]
  - DIARRHOEA [None]
  - DYSPNOEA [None]
  - INTESTINAL OBSTRUCTION [None]
  - LEFT VENTRICULAR FAILURE [None]
  - MALAISE [None]
  - PULMONARY OEDEMA [None]
  - VOMITING [None]
